FAERS Safety Report 4647111-3 (Version None)
Quarter: 2005Q2

REPORT INFORMATION
  Report Type: 
  Country: None (occurrence: None)
  Receive Date: 20050331
  Receipt Date: 20050124
  Transmission Date: 20051028
  Serious: No
  Sender: FDA-Public Use
  Company Number: 05P-163-0287713-00

PATIENT
  Age: 76 Year
  Sex: Male
  Weight: 72.5755 kg

DRUGS (9)
  1. HUMIRA [Suspect]
     Indication: RHEUMATOID ARTHRITIS
     Dosage: 40 MG, 1 IN 2 WK, SUBCUTANEOUS
     Route: 058
     Dates: start: 20041001
  2. CELECOXIB [Concomitant]
  3. PREDNISONE [Concomitant]
  4. METHOTREXATE [Concomitant]
  5. LANSOPRAZOLE [Concomitant]
  6. FUROSEMIDE [Concomitant]
  7. ATORVASTATIN CALCIUM [Concomitant]
  8. LEVOTHYROXINE SODIUM [Concomitant]
  9. ACETYL SALICYLIC ACID USP BAT [Concomitant]

REACTIONS (6)
  - CHILLS [None]
  - CHROMATURIA [None]
  - FATIGUE [None]
  - IRRITABILITY [None]
  - OEDEMA PERIPHERAL [None]
  - RASH [None]
